FAERS Safety Report 15477870 (Version 1)
Quarter: 2018Q4

REPORT INFORMATION
  Report Type: Spontaneous
  Country: US (occurrence: US)
  Receive Date: 20181002
  Receipt Date: 20181002
  Transmission Date: 20190205
  Serious: Yes (Hospitalization)
  Sender: FDA-Public Use
  Company Number: None

PATIENT
  Sex: Female

DRUGS (12)
  1. OTREXUP [Suspect]
     Active Substance: METHOTREXATE
     Indication: OSTEOARTHRITIS
     Dosage: ?          OTHER FREQUENCY:QW;?
     Route: 058
     Dates: start: 20160218
  2. NAPROSYN [Concomitant]
     Active Substance: NAPROXEN
  3. MEDROL [Concomitant]
     Active Substance: METHYLPREDNISOLONE
  4. METHYLPRED [Concomitant]
     Active Substance: METHYLPREDNISOLONE
  5. VITAMIN D3 [Concomitant]
     Active Substance: CHOLECALCIFEROL
  6. OXYCODONE [Concomitant]
     Active Substance: OXYCODONE
  7. TRAMADOL. [Concomitant]
     Active Substance: TRAMADOL
  8. OTEZLA [Concomitant]
     Active Substance: APREMILAST
  9. LEVOTHYROXIN [Concomitant]
     Active Substance: LEVOTHYROXINE
  10. CALCIUM [Concomitant]
     Active Substance: CALCIUM
  11. ETODOLAC. [Concomitant]
     Active Substance: ETODOLAC
  12. CHOLESTYRAM [Concomitant]
     Active Substance: CHOLESTYRAMINE

REACTIONS (2)
  - Surgery [None]
  - Product dose omission [None]
